FAERS Safety Report 10466679 (Version 3)
Quarter: 2014Q4

REPORT INFORMATION
  Report Type: Spontaneous
  Country: FI (occurrence: FI)
  Receive Date: 20140922
  Receipt Date: 20141021
  Transmission Date: 20150528
  Serious: Yes (Hospitalization, Other)
  Sender: FDA-Public Use
  Company Number: FI-JNJFOC-20140913284

PATIENT
  Sex: Male

DRUGS (13)
  1. PRIMASPAN [Concomitant]
  2. RENITEC (ENALAPRIL) [Concomitant]
     Active Substance: ENALAPRIL MALEATE
     Route: 065
  3. XARELTO [Suspect]
     Active Substance: RIVAROXABAN
     Indication: DEEP VEIN THROMBOSIS
     Route: 048
     Dates: start: 20140903, end: 20140905
  4. CLEXANE [Suspect]
     Active Substance: ENOXAPARIN SODIUM
     Indication: DEEP VEIN THROMBOSIS
     Route: 065
  5. LANTUS [Concomitant]
     Active Substance: INSULIN GLARGINE
     Route: 065
  6. XARELTO [Suspect]
     Active Substance: RIVAROXABAN
     Indication: EMBOLISM VENOUS
     Route: 048
     Dates: start: 20140903, end: 20140905
  7. DONEPEZIL [Concomitant]
     Active Substance: DONEPEZIL
     Route: 065
  8. JANUVIA [Concomitant]
     Active Substance: SITAGLIPTIN PHOSPHATE
     Route: 065
  9. COLONSOFT [Concomitant]
     Route: 065
  10. KARDOPAL [Concomitant]
     Route: 065
  11. DEVISOL [Concomitant]
     Route: 065
  12. BETOLVEX [Concomitant]
     Active Substance: CYANOCOBALAMIN
     Route: 065
  13. PANADOL [Concomitant]
     Active Substance: ACETAMINOPHEN
     Indication: PAIN
     Route: 065

REACTIONS (4)
  - Gastric ulcer [Recovered/Resolved]
  - Melaena [Recovered/Resolved]
  - Haemoglobin decreased [Unknown]
  - Epistaxis [Recovered/Resolved]

NARRATIVE: CASE EVENT DATE: 20140904
